FAERS Safety Report 7126783 (Version 3)
Quarter: 2016Q3

REPORT INFORMATION
  Report Type: Spontaneous
  Country: US (occurrence: US)
  Receive Date: 20090923
  Receipt Date: 20160829
  Transmission Date: 20161109
  Serious: Yes (Other)
  Sender: FDA-Public Use
  Company Number: US-AMGEN-QUU364821

PATIENT
  Age: 32 Year
  Sex: Female

DRUGS (1)
  1. ENBREL [Suspect]
     Active Substance: ETANERCEPT
     Indication: EXPOSURE VIA FATHER
     Dosage: 50 MG, 2 TIMES/WK
     Route: 050
     Dates: start: 20070529, end: 201004

REACTIONS (2)
  - Gestational diabetes [Unknown]
  - Exposure via father [Unknown]

NARRATIVE: CASE EVENT DATE: 2009
